FAERS Safety Report 21567651 (Version 7)
Quarter: 2024Q1

REPORT INFORMATION
  Report Type: Spontaneous
  Country: US (occurrence: US)
  Receive Date: 20221108
  Receipt Date: 20240116
  Transmission Date: 20240410
  Serious: Yes (Hospitalization, Disabling, Other)
  Sender: FDA-Public Use
  Company Number: US-PFIZER INC-2021364863

PATIENT
  Age: 74 Year
  Sex: Female

DRUGS (3)
  1. LORBRENA [Suspect]
     Active Substance: LORLATINIB
     Dosage: UNK
     Route: 048
  2. LORBRENA [Suspect]
     Active Substance: LORLATINIB
     Dosage: 50 MG, DAILY (2 TABLETS OF 25 MG DAILY)
     Route: 048
  3. LORBRENA [Suspect]
     Active Substance: LORLATINIB
     Dosage: 75 MG, DAILY (3 TABLETS OF 25 MG DAILY)
     Route: 048

REACTIONS (5)
  - Pharyngeal operation [Unknown]
  - Limb injury [Unknown]
  - Hip fracture [Unknown]
  - Fall [Unknown]
  - Dysarthria [Unknown]
